FAERS Safety Report 14336910 (Version 1)
Quarter: 2017Q4

REPORT INFORMATION
  Report Type: Spontaneous
  Country: IN (occurrence: IN)
  Receive Date: 20171229
  Receipt Date: 20171229
  Transmission Date: 20180321
  Serious: Yes (Hospitalization)
  Sender: FDA-Public Use
  Company Number: IN-UNICHEM PHARMACEUTICALS (USA) INC-UCM201712-000319

PATIENT
  Age: 7 Year
  Sex: Male

DRUGS (2)
  1. DIVALPROEX SODIUM. [Suspect]
     Active Substance: DIVALPROEX SODIUM
     Dosage: TWO DIVIDED DOSE
  2. LAMOTRIGINE. [Concomitant]
     Active Substance: LAMOTRIGINE
     Dosage: TWO DIVIDED DOSES

REACTIONS (3)
  - Cardiac failure [Recovered/Resolved]
  - Aplasia pure red cell [Recovered/Resolved]
  - Anaemia [Recovering/Resolving]
